FAERS Safety Report 7002069-7 (Version None)
Quarter: 2010Q3

REPORT INFORMATION
  Report Type: 
  Country: None (occurrence: None)
  Receive Date: 20100917
  Receipt Date: 20100917
  Transmission Date: 20110219
  Serious: Yes (Hospitalization)
  Sender: FDA-Public Use
  Company Number: None

PATIENT
  Age: 87 Year
  Sex: Female
  Weight: 49.8957 kg

DRUGS (1)
  1. ATARAX [Suspect]
     Indication: RASH PRURITIC
     Dosage: 1 OR 2 AT BEDTIME ORAL
     Route: 048
     Dates: start: 20100820

REACTIONS (4)
  - AGITATION [None]
  - APHASIA [None]
  - DISORIENTATION [None]
  - EYE DISORDER [None]
